FAERS Safety Report 23537034 (Version 1)
Quarter: 2024Q1

REPORT INFORMATION
  Report Type: Report from Study
  Country: US (occurrence: US)
  Receive Date: 20240219
  Receipt Date: 20240219
  Transmission Date: 20240409
  Serious: No
  Sender: FDA-Public Use
  Company Number: US-AURINIA PHARMACEUTICALS INC.-AUR-004274

PATIENT
  Sex: Male

DRUGS (1)
  1. LUPKYNIS [Suspect]
     Active Substance: VOCLOSPORIN
     Indication: Lupus nephritis
     Dosage: 15.8 MILLIGRAM, BID
     Route: 048
     Dates: start: 20210507

REACTIONS (6)
  - Blood pressure fluctuation [Unknown]
  - Stress [Unknown]
  - Visual impairment [Unknown]
  - Dizziness [Unknown]
  - Blood creatine increased [Unknown]
  - Product packaging difficult to open [Unknown]
